FAERS Safety Report 6062166-X (Version None)
Quarter: 2009Q1

REPORT INFORMATION
  Report Type: 
  Country: None (occurrence: None)
  Receive Date: 20090202
  Receipt Date: 20090202
  Transmission Date: 20090719
  Serious: No
  Sender: FDA-Public Use
  Company Number: None

PATIENT
  Sex: Male
  Weight: 90.7194 kg

DRUGS (1)
  1. RISPERIDONE [Suspect]
     Indication: SCHIZOAFFECTIVE DISORDER
     Dosage: 2 MG BID PO ON AND OFF
     Route: 048
     Dates: start: 20080801, end: 20081017

REACTIONS (6)
  - HEADACHE [None]
  - NERVOUS SYSTEM DISORDER [None]
  - PARANOIA [None]
  - SLEEP DISORDER [None]
  - SOMNOLENCE [None]
  - THERAPEUTIC RESPONSE UNEXPECTED WITH DRUG SUBSTITUTION [None]
